FAERS Safety Report 21224087 (Version 1)
Quarter: 2022Q3

REPORT INFORMATION
  Report Type: Spontaneous
  Country: US (occurrence: US)
  Receive Date: 20220817
  Receipt Date: 20220817
  Transmission Date: 20221027
  Serious: No
  Sender: FDA-Public Use
  Company Number: US-SA-2022MK000186

PATIENT
  Sex: Female

DRUGS (3)
  1. AFREZZA [Suspect]
     Active Substance: INSULIN HUMAN
     Indication: Product used for unknown indication
     Dosage: BEFORE MEALS, DOSE DEPENDS ON TYPE OF MEAL
     Dates: start: 202106
  2. AFREZZA [Suspect]
     Active Substance: INSULIN HUMAN
     Dosage: BEFORE MEALS, DOSE DEPENDS ON TYPE OF MEAL
     Dates: start: 202106
  3. TRESIBA [Concomitant]
     Active Substance: INSULIN DEGLUDEC

REACTIONS (2)
  - Cough [Unknown]
  - Throat irritation [Unknown]
